FAERS Safety Report 23266024 (Version 1)
Quarter: 2023Q4

REPORT INFORMATION
  Report Type: Spontaneous
  Country: IN (occurrence: None)
  Receive Date: 20231206
  Receipt Date: 20231206
  Transmission Date: 20240109
  Serious: Yes (Hospitalization, Other)
  Sender: FDA-Public Use
  Company Number: IN-MICRO LABS LIMITED-ML2023-07015

PATIENT
  Age: 24 Year
  Sex: Female

DRUGS (1)
  1. MEFENAMIC ACID [Suspect]
     Active Substance: MEFENAMIC ACID
     Indication: Analgesic therapy
     Dosage: 500 MG FOR PAIN RELIEF FOR 10 DAYS

REACTIONS (1)
  - Generalised bullous fixed drug eruption [Recovered/Resolved]
